FAERS Safety Report 9218283 (Version 1)
Quarter: 2013Q2

REPORT INFORMATION
  Report Type: Spontaneous
  Country: US (occurrence: US)
  Receive Date: 20130409
  Receipt Date: 20130409
  Transmission Date: 20140414
  Serious: No
  Sender: FDA-Public Use
  Company Number: US-009507513-1304USA000686

PATIENT
  Sex: Male

DRUGS (5)
  1. VICTRELIS [Suspect]
     Indication: HEPATITIS C
     Dosage: 800 MG, TID
     Route: 048
     Dates: start: 20130220
  2. REBETOL [Suspect]
     Indication: HEPATITIS C
     Dosage: UNK
     Dates: start: 20130220
  3. REBETOL [Suspect]
     Dosage: 800 MG, QD
     Route: 048
  4. PEGASYS [Suspect]
     Indication: HEPATITIS C
     Dosage: UNK
     Dates: start: 20130220
  5. PEGASYS [Suspect]
     Dosage: 90 MICROGRAM, QW

REACTIONS (2)
  - White blood cell count decreased [Unknown]
  - Back pain [Unknown]
